FAERS Safety Report 9505722 (Version 1)
Quarter: 2013Q1

REPORT INFORMATION
  Report Type: Spontaneous
  Country: US (occurrence: None)
  Receive Date: 20130225
  Receipt Date: 20130225
  Transmission Date: 20140127
  Serious: No
  Sender: FDA-Public Use
  Company Number: 366571

PATIENT
  Age: 62 Year
  Sex: Female

DRUGS (5)
  1. VICTOZA (LIRAGLUTIDE) SOLUTION FOR INJECTION, 6 MG/ML [Suspect]
     Indication: TYPE 2 DIABETES MELLITUS
     Route: 058
     Dates: start: 201211
  2. AMBIEN (ZOLPIDEM TARTRATE) [Concomitant]
  3. ATENOLOL (ATENOLOL) [Concomitant]
  4. LEXAPRO (ESCITALOPRAM OXALATE) [Concomitant]
  5. METFORMIN (METFORMIN) [Concomitant]

REACTIONS (1)
  - Uterine disorder [None]
